FAERS Safety Report 7746789-5 (Version None)
Quarter: 2011Q3

REPORT INFORMATION
  Report Type: 
  Country: None (occurrence: None)
  Receive Date: 20110913
  Receipt Date: 20110908
  Transmission Date: 20111222
  Serious: No
  Sender: FDA-Public Use
  Company Number: US-TEVA-300046USA

PATIENT
  Sex: Female
  Weight: 47.67 kg

DRUGS (3)
  1. MULTI-VITAMINS [Concomitant]
     Indication: VITAMIN SUPPLEMENTATION
  2. PLAN B ONE-STEP [Suspect]
     Indication: POST COITAL CONTRACEPTION
     Dosage: 1.5 MILLIGRAM;
     Route: 048
  3. PARAGARD T 380A [Suspect]
     Indication: CONTRACEPTION

REACTIONS (2)
  - NAUSEA [None]
  - MENSTRUATION IRREGULAR [None]
